FAERS Safety Report 13772239 (Version 4)
Quarter: 2017Q4

REPORT INFORMATION
  Report Type: Report from Study
  Country: CA (occurrence: CA)
  Receive Date: 20170720
  Receipt Date: 20171120
  Transmission Date: 20180320
  Serious: Yes (Disabling)
  Sender: FDA-Public Use
  Company Number: CA-JNJFOC-20170714799

PATIENT
  Age: 15 Year
  Sex: Male
  Weight: 88.4 kg

DRUGS (2)
  1. REMICADE [Suspect]
     Active Substance: INFLIXIMAB
     Indication: COLITIS ULCERATIVE
     Route: 042
     Dates: start: 20151028, end: 201708
  2. REMICADE [Suspect]
     Active Substance: INFLIXIMAB
     Indication: COLITIS ULCERATIVE
     Route: 042
     Dates: start: 201501

REACTIONS (3)
  - Product use issue [Unknown]
  - Off label use [Unknown]
  - Eye infection toxoplasmal [Recovered/Resolved]

NARRATIVE: CASE EVENT DATE: 201501
